FAERS Safety Report 19578031 (Version 2)
Quarter: 2021Q4

REPORT INFORMATION
  Report Type: Spontaneous
  Country: US (occurrence: US)
  Receive Date: 20210719
  Receipt Date: 20211108
  Transmission Date: 20220304
  Serious: No
  Sender: FDA-Public Use
  Company Number: US-BRISTOL-MYERS SQUIBB COMPANY-BMS-2021-070053

PATIENT
  Age: 34 Year
  Sex: Male

DRUGS (1)
  1. SPRYCEL [Suspect]
     Active Substance: DASATINIB
     Indication: Chronic myeloid leukaemia
     Dosage: 100 MG, DAILY
     Route: 048
     Dates: start: 20210330

REACTIONS (3)
  - Rash [Unknown]
  - Acne [Unknown]
  - Dry skin [Unknown]
